FAERS Safety Report 8076985-1 (Version None)
Quarter: 2012Q1

REPORT INFORMATION
  Report Type: 
  Country: None (occurrence: None)
  Receive Date: 20120127
  Receipt Date: 20120125
  Transmission Date: 20120608
  Serious: Yes (Other)
  Sender: FDA-Public Use
  Company Number: US-GLAXOSMITHKLINE-A0963300A

PATIENT
  Sex: Female

DRUGS (1)
  1. ADVAIR DISKUS 100/50 [Suspect]
     Indication: ASTHMA
     Route: 055
     Dates: start: 20080401

REACTIONS (21)
  - ASTHMA [None]
  - VITAMIN D DEFICIENCY [None]
  - PLANTAR FASCIITIS [None]
  - PAIN IN EXTREMITY [None]
  - BACK PAIN [None]
  - EYE IRRITATION [None]
  - ILL-DEFINED DISORDER [None]
  - THYROID NEOPLASM [None]
  - NERVOUSNESS [None]
  - VISUAL IMPAIRMENT [None]
  - BLOOD PRESSURE FLUCTUATION [None]
  - BLOOD GLUCOSE INCREASED [None]
  - CHOKING SENSATION [None]
  - EAR PAIN [None]
  - DYSPHONIA [None]
  - THROAT TIGHTNESS [None]
  - EXTRAOCULAR MUSCLE PARESIS [None]
  - OCULAR HYPERAEMIA [None]
  - MUSCLE SPASMS [None]
  - COUGH [None]
  - CHEST PAIN [None]
